FAERS Safety Report 8808088 (Version 1)
Quarter: 2012Q4

REPORT INFORMATION
  Report Type: 
  Country: CN (occurrence: CN)
  Receive Date: 20120926
  Receipt Date: 20120926
  Transmission Date: 20130627
  Serious: Yes (Hospitalization)
  Sender: FDA-Public Use
  Company Number: CN-ABBOTT-12P-035-0982025-00

PATIENT
  Sex: Male
  Weight: 70 kg

DRUGS (3)
  1. CLARITHROMYCIN [Suspect]
     Indication: GASTRITIS
     Route: 048
     Dates: start: 20100610, end: 20100710
  2. LANSOPRAZOLE [Suspect]
     Indication: GASTRITIS
  3. TINIDAZOLE [Suspect]
     Indication: GASTRITIS

REACTIONS (9)
  - Erythema multiforme [Recovering/Resolving]
  - Drug eruption [Recovering/Resolving]
  - Rash erythematous [Recovered/Resolved]
  - Pruritus [Recovered/Resolved]
  - Pyrexia [Recovered/Resolved]
  - Nasopharyngitis [Recovered/Resolved]
  - Mouth ulceration [Recovered/Resolved]
  - Nausea [Recovered/Resolved]
  - Feeling cold [None]
